FAERS Safety Report 4712498-X (Version None)
Quarter: 2005Q2

REPORT INFORMATION
  Report Type: 
  Country: None (occurrence: None)
  Receive Date: 20050629
  Receipt Date: 20050308
  Transmission Date: 20051028
  Serious: No
  Sender: FDA-Public Use
  Company Number: 05P-163-0293115-00

PATIENT
  Age: 45 Year
  Sex: Male
  Weight: 118 kg

DRUGS (4)
  1. HUMIRA [Suspect]
     Indication: RHEUMATOID ARTHRITIS
     Dosage: 40 MG, 1 IN 2 WK, SUBCUTANEOUS
     Route: 058
     Dates: start: 20040101
  2. CALCIUM GLUCONATE [Concomitant]
  3. PREDNISONE TAB [Concomitant]
  4. MULTI-VITAMINS [Concomitant]

REACTIONS (4)
  - DYSPEPSIA [None]
  - EYE IRRITATION [None]
  - FURUNCLE [None]
  - UNEVALUABLE EVENT [None]
